FAERS Safety Report 10072284 (Version 3)
Quarter: 2016Q3

REPORT INFORMATION
  Report Type: Spontaneous
  Country: US (occurrence: US)
  Receive Date: 20140411
  Receipt Date: 20160826
  Transmission Date: 20161108
  Serious: Yes (Life-Threatening, Hospitalization)
  Sender: FDA-Public Use
  Company Number: US-BAYER-2014-052886

PATIENT
  Age: 36 Year
  Sex: Female
  Weight: 52.15 kg

DRUGS (4)
  1. MIRENA [Suspect]
     Active Substance: LEVONORGESTREL
     Indication: CONTRACEPTION
     Dosage: 20 MCG/24HR, CONT
     Route: 015
     Dates: start: 20110126, end: 20110211
  2. PRENATAL [Concomitant]
     Active Substance: VITAMINS
     Dosage: UNK
     Dates: start: 20081102
  3. IBUPROFEN. [Concomitant]
     Active Substance: IBUPROFEN
  4. TYLENOL [Concomitant]
     Active Substance: ACETAMINOPHEN

REACTIONS (8)
  - Uterine perforation [Recovered/Resolved]
  - Device issue [Recovered/Resolved]
  - Abdominal pain lower [Recovered/Resolved]
  - Anxiety [None]
  - Vulvovaginal pain [Recovered/Resolved]
  - Depression [None]
  - Emotional distress [None]
  - Device dislocation [Recovered/Resolved]

NARRATIVE: CASE EVENT DATE: 20110126
